FAERS Safety Report 9476854 (Version 1)
Quarter: 2013Q3

REPORT INFORMATION
  Report Type: Spontaneous
  Country: GB (occurrence: GB)
  Receive Date: 20130826
  Receipt Date: 20130826
  Transmission Date: 20140515
  Serious: Yes (Other)
  Sender: FDA-Public Use
  Company Number: GB-ACTAVIS-2013-14874

PATIENT
  Age: 34 Year
  Sex: Male

DRUGS (2)
  1. CETIRIZINE (UNKNOWN) [Suspect]
     Indication: URTICARIA
     Dosage: UNK
     Route: 048
     Dates: start: 20130725, end: 20130725
  2. CHLORPHENAMINE [Concomitant]
     Indication: URTICARIA
     Dosage: 4 MG, DAILY
     Route: 065
     Dates: start: 20130528, end: 20130725

REACTIONS (5)
  - Nausea [Unknown]
  - Tremor [Unknown]
  - Palpitations [Unknown]
  - Euphoric mood [Unknown]
  - Tachycardia [Unknown]
